FAERS Safety Report 4344745-0 (Version None)
Quarter: 2004Q2

REPORT INFORMATION
  Report Type: 
  Country: None (occurrence: None)
  Receive Date: 20040423
  Receipt Date: 20040218
  Transmission Date: 20050107
  Serious: Yes (Life-Threatening)
  Sender: FDA-Public Use
  Company Number: 200410575JP

PATIENT
  Age: 76 Year
  Sex: Female
  Weight: 42 kg

DRUGS (6)
  1. TAXOTERE [Suspect]
     Indication: ORAL NEOPLASM
     Route: 013
     Dates: start: 20040122, end: 20040122
  2. RADIATION THERAPY [Concomitant]
     Indication: ORAL NEOPLASM
     Dates: start: 20040122
  3. RANDA [Concomitant]
     Indication: CARCINOMA
     Route: 013
     Dates: start: 20030918, end: 20031208
  4. DECADRON [Concomitant]
     Route: 042
     Dates: start: 20040122
  5. LASIX [Concomitant]
     Route: 042
     Dates: start: 20040122
  6. KYTRIL [Concomitant]
     Route: 042
     Dates: start: 20040122

REACTIONS (6)
  - ANURIA [None]
  - BLOOD ALBUMIN DECREASED [None]
  - DISSEMINATED INTRAVASCULAR COAGULATION [None]
  - LYMPHOCYTE PERCENTAGE DECREASED [None]
  - MELAENA [None]
  - WHITE BLOOD CELL COUNT INCREASED [None]
